FAERS Safety Report 11115671 (Version 2)
Quarter: 2015Q2

REPORT INFORMATION
  Report Type: Spontaneous
  Country: PL (occurrence: PL)
  Receive Date: 20150515
  Receipt Date: 20150519
  Transmission Date: 20150821
  Serious: Yes (Death)
  Sender: FDA-Public Use
  Company Number: PL-TEVA-562163ISR

PATIENT
  Age: 37 Year
  Sex: Male

DRUGS (2)
  1. CISPLATIN. [Suspect]
     Active Substance: CISPLATIN
     Route: 065
  2. ETHOPOSIDE [Suspect]
     Active Substance: ETOPOSIDE
     Route: 065

REACTIONS (4)
  - Pneumonia [Fatal]
  - Leukopenia [Fatal]
  - Sepsis [Fatal]
  - Agranulocytosis [Fatal]
